FAERS Safety Report 8614530 (Version 4)
Quarter: 2014Q2

REPORT INFORMATION
  Report Type: Spontaneous
  Country: US (occurrence: US)
  Receive Date: 20120614
  Receipt Date: 20140404
  Transmission Date: 20141212
  Serious: Yes (Disabling)
  Sender: FDA-Public Use
  Company Number: US-ASTRAZENECA-2012SE35712

PATIENT
  Age: 53 Year
  Sex: Male
  Weight: 72.6 kg

DRUGS (17)
  1. NEXIUM [Suspect]
     Indication: GASTROOESOPHAGEAL REFLUX DISEASE
     Route: 048
     Dates: start: 2000, end: 201010
  2. NEXIUM [Suspect]
     Indication: GASTROOESOPHAGEAL REFLUX DISEASE
     Route: 048
     Dates: start: 20021118
  3. NEXIUM [Suspect]
     Indication: GASTROOESOPHAGEAL REFLUX DISEASE
     Route: 048
     Dates: start: 20091119
  4. OMEPRAZOLE [Suspect]
     Route: 048
     Dates: start: 201111
  5. PREVACID OTC [Concomitant]
     Dates: start: 2010, end: 2011
  6. LISINOPRIL [Concomitant]
     Route: 048
  7. DIOVAN [Concomitant]
     Route: 048
     Dates: start: 20091204
  8. BISACODYL EC [Concomitant]
     Dosage: 5 MG AS DIRECTED
     Route: 048
     Dates: start: 20100723
  9. AMOXICILLIN [Concomitant]
     Route: 048
     Dates: start: 20100917
  10. CEPHALEXIN [Concomitant]
     Route: 048
  11. MELOXICAM [Concomitant]
     Route: 048
     Dates: start: 20120628
  12. PROMETHAZINE [Concomitant]
     Indication: VOMITING
     Dosage: 1 TABLET EVERY 4 TO 6 HOURS IF NEEDED
     Route: 048
     Dates: start: 20120908
  13. PROMETHAZINE [Concomitant]
     Indication: NAUSEA
     Dosage: 1 TABLET EVERY 4 TO 6 HOURS IF NEEDED
     Route: 048
     Dates: start: 20120908
  14. PREDNISONE [Concomitant]
     Route: 048
     Dates: start: 20131224
  15. PRILOSEC OTC [Concomitant]
     Route: 048
     Dates: start: 20041116
  16. ALLEGRA [Concomitant]
     Route: 048
     Dates: start: 20040817
  17. METHYLPREDNISOLONE [Concomitant]
     Route: 048
     Dates: start: 20091101

REACTIONS (6)
  - Joint injury [Unknown]
  - Multiple fractures [Unknown]
  - Arthritis [Unknown]
  - Cataract [Unknown]
  - Osteoporosis [Unknown]
  - Osteopenia [Unknown]
